FAERS Safety Report 23842601 (Version 2)
Quarter: 2024Q2

REPORT INFORMATION
  Report Type: Spontaneous
  Country: PT (occurrence: PT)
  Receive Date: 20240510
  Receipt Date: 20240521
  Transmission Date: 20240716
  Serious: Yes (Other)
  Sender: FDA-Public Use
  Company Number: PT-009507513-2404PRT009648

PATIENT
  Age: 63 Year
  Sex: Male

DRUGS (1)
  1. RECARBRIO [Suspect]
     Active Substance: CILASTATIN\IMIPENEM ANHYDROUS\RELEBACTAM ANHYDROUS
     Indication: Osteomyelitis
     Dosage: UNK

REACTIONS (3)
  - Drug resistance [Unknown]
  - Treatment failure [Unknown]
  - Off label use [Unknown]
